FAERS Safety Report 11919279 (Version 4)
Quarter: 2016Q2

REPORT INFORMATION
  Report Type: Report from Study
  Country: CA (occurrence: CA)
  Receive Date: 20160115
  Receipt Date: 20160603
  Transmission Date: 20160815
  Serious: Yes (Other)
  Sender: FDA-Public Use
  Company Number: CA-ROCHE-1474812

PATIENT
  Age: 72 Year
  Sex: Female
  Weight: 59.3 kg

DRUGS (3)
  1. SYNTHROID [Concomitant]
     Active Substance: LEVOTHYROXINE SODIUM
  2. AVASTIN [Suspect]
     Active Substance: BEVACIZUMAB
     Indication: OVARIAN CANCER
     Dosage: DOSE DECREASED TO 800 MG?LAST RECEIVED DATE OF DOSE:04/DEC/2015?ON HOLD
     Route: 042
     Dates: start: 20140919, end: 20160506
  3. TYLENOL WITH CODEINE [Concomitant]
     Active Substance: ACETAMINOPHEN\CODEINE PHOSPHATE
     Route: 065

REACTIONS (6)
  - Off label use [Unknown]
  - Osteoarthritis [Unknown]
  - Drug dose omission [Unknown]
  - Peripheral swelling [Unknown]
  - Weight decreased [Recovered/Resolved]
  - Weight decreased [Not Recovered/Not Resolved]

NARRATIVE: CASE EVENT DATE: 201602
